FAERS Safety Report 15113804 (Version 3)
Quarter: 2020Q1

REPORT INFORMATION
  Report Type: Report from Study
  Country: US (occurrence: US)
  Receive Date: 20180706
  Receipt Date: 20200229
  Transmission Date: 20200409
  Serious: Yes (Other)
  Sender: FDA-Public Use
  Company Number: PHEH2018US026841

PATIENT
  Sex: Female

DRUGS (2)
  1. AFINITOR [Suspect]
     Active Substance: EVEROLIMUS
     Indication: ASTROCYTOMA, LOW GRADE
     Dosage: 2.5 MG, QOD {EVERY OTHER DAY}
     Route: 048
     Dates: start: 20140703
  2. AFINITOR [Suspect]
     Active Substance: EVEROLIMUS
     Indication: TUBEROUS SCLEROSIS COMPLEX

REACTIONS (5)
  - Supraventricular tachycardia [Unknown]
  - Wolff-Parkinson-White syndrome [Unknown]
  - Malignant neoplasm progression [Unknown]
  - Astrocytoma, low grade [Unknown]
  - Drug level increased [Unknown]
